FAERS Safety Report 5680703-1 (Version None)
Quarter: 2008Q1

REPORT INFORMATION
  Report Type: 
  Country: None (occurrence: None)
  Receive Date: 20080326
  Receipt Date: 20080320
  Transmission Date: 20080703
  Serious: Yes (Other)
  Sender: FDA-Public Use
  Company Number: DE-ABBOTT-08P-062-0438863-00

PATIENT
  Sex: Female

DRUGS (2)
  1. ERGENYL LABAZ [Suspect]
     Indication: DRUG USE FOR UNKNOWN INDICATION
  2. TEMOZOLOMIDE [Interacting]
     Indication: GLIOBLASTOMA

REACTIONS (1)
  - EPILEPSY [None]
